FAERS Safety Report 5764331-5 (Version None)
Quarter: 2008Q2

REPORT INFORMATION
  Report Type: 
  Country: None (occurrence: None)
  Receive Date: 20080610
  Receipt Date: 20071206
  Transmission Date: 20081010
  Serious: No
  Sender: FDA-Public Use
  Company Number: US-BOEHRINGER INGELHEIM GMBH, GERMANY-2006-BP-09652BP

PATIENT
  Sex: Male
  Weight: 172 kg

DRUGS (16)
  1. MIRAPEX [Suspect]
     Indication: PARKINSON'S DISEASE
     Route: 048
     Dates: start: 19900101, end: 20031101
  2. SINEMET [Concomitant]
     Indication: PARKINSON'S DISEASE
  3. PAXIL [Concomitant]
  4. OXBUTYNIN [Concomitant]
  5. REQUIP [Concomitant]
  6. STALEVO 100 [Concomitant]
  7. COMTAN [Concomitant]
  8. AZILECT [Concomitant]
  9. DETROL [Concomitant]
     Indication: POLLAKIURIA
  10. CYMBALTA [Concomitant]
  11. LEXAPRO [Concomitant]
  12. FLOMAX [Concomitant]
     Indication: INCONTINENCE
  13. AMBIEN [Concomitant]
     Indication: INSOMNIA
  14. ASCORBIC ACID [Concomitant]
  15. VITAMIN E [Concomitant]
  16. PERMAX [Concomitant]

REACTIONS (6)
  - ANXIETY [None]
  - DEPRESSION [None]
  - EMOTIONAL DISTRESS [None]
  - OBSESSIVE-COMPULSIVE DISORDER [None]
  - PATHOLOGICAL GAMBLING [None]
  - STRESS [None]
